FAERS Safety Report 10403103 (Version 2)
Quarter: 2014Q3

REPORT INFORMATION
  Report Type: Spontaneous
  Country: US (occurrence: US)
  Receive Date: 20140822
  Receipt Date: 20140822
  Transmission Date: 20150326
  Serious: Yes (Hospitalization)
  Sender: FDA-Public Use
  Company Number: US-GLAXOSMITHKLINE-A0756278A

PATIENT
  Sex: Male
  Weight: 106.8 kg

DRUGS (6)
  1. CLARITIN [Concomitant]
     Active Substance: LORATADINE
  2. DIOVAN [Concomitant]
     Active Substance: VALSARTAN
  3. PLAVIX [Concomitant]
     Active Substance: CLOPIDOGREL BISULFATE
  4. AVANDIA [Suspect]
     Active Substance: ROSIGLITAZONE MALEATE
     Indication: TYPE 2 DIABETES MELLITUS
     Dosage: 4MG PER DAY
     Route: 048
     Dates: start: 20050418, end: 20070504
  5. ENALAPRIL [Concomitant]
     Active Substance: ENALAPRIL
  6. TARKA [Concomitant]
     Active Substance: TRANDOLAPRIL\VERAPAMIL HYDROCHLORIDE

REACTIONS (4)
  - Cardiac failure congestive [Unknown]
  - Cardiac disorder [Unknown]
  - Coronary artery disease [Unknown]
  - Atrioventricular block complete [Unknown]
